FAERS Safety Report 5759873-2 (Version None)
Quarter: 2008Q2

REPORT INFORMATION
  Report Type: 
  Country: None (occurrence: None)
  Receive Date: 20080605
  Receipt Date: 20080529
  Transmission Date: 20081010
  Serious: Yes (Other)
  Sender: FDA-Public Use
  Company Number: PHHY2008IT09336

PATIENT
  Sex: Female

DRUGS (2)
  1. AREDIA [Suspect]
     Dosage: UNK
     Dates: start: 19990101, end: 20040101
  2. ZOMETA [Suspect]
     Dosage: UNK
     Dates: start: 19990101, end: 20040101

REACTIONS (4)
  - JAW DISORDER [None]
  - MASTICATION DISORDER [None]
  - ORAL DISORDER [None]
  - OSTEONECROSIS [None]
